FAERS Safety Report 7272234-2 (Version None)
Quarter: 2011Q1

REPORT INFORMATION
  Report Type: 
  Country: None (occurrence: None)
  Receive Date: 20110203
  Receipt Date: 20110121
  Transmission Date: 20110831
  Serious: Yes (Other)
  Sender: FDA-Public Use
  Company Number: PHHY2011BR05448

PATIENT
  Sex: Female

DRUGS (2)
  1. DIOVAN [Suspect]
     Dosage: 160 MG
  2. DIOVAN [Suspect]
     Dosage: 320 MG, UNK
     Route: 048

REACTIONS (3)
  - HYPOTENSION [None]
  - GASTROINTESTINAL CARCINOMA [None]
  - WEIGHT DECREASED [None]
